FAERS Safety Report 23728855 (Version 2)
Quarter: 2024Q3

REPORT INFORMATION
  Report Type: Report from Study
  Country: DE (occurrence: DE)
  Receive Date: 20240410
  Receipt Date: 20240911
  Transmission Date: 20241016
  Serious: Yes (Hospitalization)
  Sender: MYLAN
  Company Number: DE-AMGEN-DEUNI2024058563

PATIENT
  Age: 66 Year
  Sex: Male

DRUGS (4)
  1. METHOTREXATE [Suspect]
     Active Substance: METHOTREXATE
     Indication: Rheumatoid arthritis
     Dosage: 12.5 MILLIGRAM, QWK
     Route: 065
  2. ADALIMUMAB [Suspect]
     Active Substance: ADALIMUMAB
     Indication: Rheumatoid arthritis
     Dosage: 40 MILLIGRAM, Q2WK, LAST ADMINISTRATION: SEP/2023
     Route: 065
     Dates: end: 202309
  3. KEVZARA [Concomitant]
     Active Substance: SARILUMAB
     Dosage: 200 MILLIGRAM, Q2WK
     Route: 065
     Dates: start: 20231005
  4. PREDNISOLONE [Concomitant]
     Active Substance: PREDNISOLONE
     Route: 065

REACTIONS (1)
  - Rheumatoid arthritis [Recovered/Resolved]
